FAERS Safety Report 25255511 (Version 1)
Quarter: 2025Q2

REPORT INFORMATION
  Report Type: Spontaneous
  Country: US (occurrence: US)
  Receive Date: 20250430
  Receipt Date: 20250430
  Transmission Date: 20250716
  Serious: Yes (Hospitalization)
  Sender: MYLAN
  Company Number: US-MYLANLABS-2025M1036743

PATIENT
  Age: 48 Year
  Sex: Female

DRUGS (12)
  1. ALLOPURINOL [Suspect]
     Active Substance: ALLOPURINOL
     Indication: Mantle cell lymphoma
  2. ALLOPURINOL [Suspect]
     Active Substance: ALLOPURINOL
     Route: 065
  3. ALLOPURINOL [Suspect]
     Active Substance: ALLOPURINOL
     Route: 065
  4. ALLOPURINOL [Suspect]
     Active Substance: ALLOPURINOL
  5. CISPLATIN [Suspect]
     Active Substance: CISPLATIN
     Indication: Mantle cell lymphoma
  6. CISPLATIN [Suspect]
     Active Substance: CISPLATIN
     Route: 065
  7. CISPLATIN [Suspect]
     Active Substance: CISPLATIN
     Route: 065
  8. CISPLATIN [Suspect]
     Active Substance: CISPLATIN
  9. CYTARABINE [Suspect]
     Active Substance: CYTARABINE
     Indication: Mantle cell lymphoma
  10. CYTARABINE [Suspect]
     Active Substance: CYTARABINE
     Route: 065
  11. CYTARABINE [Suspect]
     Active Substance: CYTARABINE
     Route: 065
  12. CYTARABINE [Suspect]
     Active Substance: CYTARABINE

REACTIONS (3)
  - Charles Bonnet syndrome [Recovering/Resolving]
  - Blindness [Recovering/Resolving]
  - Stevens-Johnson syndrome [Recovering/Resolving]
